FAERS Safety Report 22351980 (Version 1)
Quarter: 2023Q2

REPORT INFORMATION
  Report Type: Spontaneous
  Country: US (occurrence: US)
  Receive Date: 20230522
  Receipt Date: 20230522
  Transmission Date: 20230722
  Serious: Yes (Hospitalization)
  Sender: FDA-Public Use
  Company Number: US-TEVA-2023-US-2888811

PATIENT
  Age: 58 Year
  Sex: Female

DRUGS (3)
  1. SORAFENIB [Suspect]
     Active Substance: SORAFENIB
     Indication: Hepatocellular carcinoma
     Dosage: 200 MILLIGRAM DAILY;
     Route: 065
  2. SORAFENIB [Suspect]
     Active Substance: SORAFENIB
     Dosage: 400 MILLIGRAM DAILY;
     Route: 065
  3. SORAFENIB [Suspect]
     Active Substance: SORAFENIB
     Dosage: 400MG IN MORNING AND 200MG AT NIGHT
     Route: 065

REACTIONS (2)
  - Hyponatraemia [Recovering/Resolving]
  - Inappropriate antidiuretic hormone secretion [Unknown]
